FAERS Safety Report 12163296 (Version 1)
Quarter: 2016Q1

REPORT INFORMATION
  Report Type: Spontaneous
  Country: US (occurrence: US)
  Receive Date: 20160309
  Receipt Date: 20160309
  Transmission Date: 20160526
  Serious: No
  Sender: FDA-Public Use
  Company Number: US-ROCHE-1557489

PATIENT
  Age: 47 Year
  Sex: Female

DRUGS (1)
  1. XOLAIR [Suspect]
     Active Substance: OMALIZUMAB
     Indication: ASTHMA
     Route: 058
     Dates: end: 201503

REACTIONS (4)
  - Throat irritation [Unknown]
  - Flushing [Unknown]
  - Aphonia [Unknown]
  - Wheezing [Unknown]

NARRATIVE: CASE EVENT DATE: 201503
